FAERS Safety Report 20611386 (Version 1)
Quarter: 2022Q1

REPORT INFORMATION
  Report Type: Spontaneous
  Country: GB (occurrence: GB)
  Receive Date: 20220318
  Receipt Date: 20220318
  Transmission Date: 20220423
  Serious: Yes (Other)
  Sender: FDA-Public Use
  Company Number: GB-MYLANLABS-2022M1020556

PATIENT
  Age: 38 Year
  Sex: Male

DRUGS (10)
  1. RISPERIDONE [Suspect]
     Active Substance: RISPERIDONE
     Indication: Schizoaffective disorder
     Dosage: 1 MILLIGRAM, QD (DOSE TITRATED UPWARDS UP TO A DOSAGE OF 4MG A DAY.)
     Route: 048
  2. RISPERIDONE [Suspect]
     Active Substance: RISPERIDONE
     Dosage: 3 MILLIGRAM, QD
     Route: 048
  3. RISPERIDONE [Suspect]
     Active Substance: RISPERIDONE
     Dosage: 4 MILLIGRAM, QD
     Route: 048
  4. DEPAKOTE [Concomitant]
     Active Substance: DIVALPROEX SODIUM
     Indication: Schizoaffective disorder
     Dosage: UNK (250MG IN THE MORNING AND 500MG AT NIGHT, AND TITRATED UP TO A DOSAGE OF 750MG TWICE A DAY OVER
     Route: 065
  5. DEPAKOTE [Concomitant]
     Active Substance: DIVALPROEX SODIUM
     Dosage: 750 MILLIGRAM
     Route: 065
  6. FLUOXETINE [Concomitant]
     Active Substance: FLUOXETINE HYDROCHLORIDE
     Indication: Behaviour disorder
     Dosage: UNK
     Route: 065
  7. MIRTAZAPINE [Concomitant]
     Active Substance: MIRTAZAPINE
     Indication: Mental disorder
     Dosage: UNK
     Route: 065
  8. PREGABALIN [Concomitant]
     Active Substance: PREGABALIN
     Indication: Anxiety
     Dosage: 25 MILLIGRAM (25MG IN THE EVENING INITIALLY AND THEN 25MG DURING THE DAY AFTER A COUPLE OF WEEKS)
     Route: 065
  9. PREGABALIN [Concomitant]
     Active Substance: PREGABALIN
     Dosage: 50 MILLIGRAM
     Route: 065
  10. SUBUTEX [Concomitant]
     Active Substance: BUPRENORPHINE HYDROCHLORIDE
     Indication: Intentional product misuse
     Dosage: 8 MILLIGRAM, QD (IN THE MORNING)
     Route: 065

REACTIONS (7)
  - Epicondylitis [Not Recovered/Not Resolved]
  - Arthralgia [Recovering/Resolving]
  - Constipation [Recovering/Resolving]
  - Nasal congestion [Recovering/Resolving]
  - Salivary hypersecretion [Recovering/Resolving]
  - Back pain [Recovering/Resolving]
  - Restlessness [Recovering/Resolving]
